FAERS Safety Report 8549505-2 (Version None)
Quarter: 2012Q3

REPORT INFORMATION
  Report Type: 
  Country: None (occurrence: None)
  Receive Date: 20120730
  Receipt Date: 20120719
  Transmission Date: 20120928
  Serious: Yes (Congenital Anomaly, Other)
  Sender: FDA-Public Use
  Company Number: JP-ASTRAZENECA-2012SE52891

PATIENT
  Age: 0 Week
  Sex: Female

DRUGS (4)
  1. VALPROATE SODIUM [Concomitant]
  2. SEROQUEL [Suspect]
     Route: 064
  3. FLUVOXAMINE MALEATE [Concomitant]
  4. FLUNITRAZEPAM [Concomitant]
     Route: 064

REACTIONS (4)
  - RESPIRATORY DEPRESSION [None]
  - DRUG WITHDRAWAL SYNDROME NEONATAL [None]
  - HYPOTONIA [None]
  - TREMOR [None]
